FAERS Safety Report 5952123-3 (Version None)
Quarter: 2008Q4

REPORT INFORMATION
  Report Type: 
  Country: None (occurrence: None)
  Receive Date: 20081113
  Receipt Date: 20080514
  Transmission Date: 20090506
  Serious: No
  Sender: FDA-Public Use
  Company Number: A0727909A

PATIENT
  Age: 55 Year
  Sex: Male

DRUGS (3)
  1. CARVEDILOL [Suspect]
     Dosage: 25MG TWICE PER DAY
     Route: 048
     Dates: start: 20050901
  2. CRESTOR [Concomitant]
  3. LISINOPRIL [Concomitant]

REACTIONS (1)
  - ALOPECIA [None]
